FAERS Safety Report 23576150 (Version 2)
Quarter: 2024Q2

REPORT INFORMATION
  Report Type: Spontaneous
  Country: PH (occurrence: None)
  Receive Date: 20240228
  Receipt Date: 20240425
  Transmission Date: 20240716
  Serious: Yes (Death, Hospitalization)
  Sender: FDA-Public Use
  Company Number: 2024A043017

PATIENT
  Sex: Male

DRUGS (1)
  1. IMFINZI [Suspect]
     Active Substance: DURVALUMAB
     Indication: Hepatocellular carcinoma
     Dosage: 500.0MG UNKNOWN
     Route: 042
     Dates: start: 202312, end: 20240128

REACTIONS (4)
  - Hepatorenal failure [Fatal]
  - Blood creatinine increased [Unknown]
  - Blood potassium increased [Unknown]
  - Asthenia [Unknown]
